FAERS Safety Report 9605026 (Version 2)
Quarter: 2013Q4

REPORT INFORMATION
  Report Type: Report from Study
  Country: US (occurrence: US)
  Receive Date: 20131008
  Receipt Date: 20131025
  Transmission Date: 20140711
  Serious: Yes (Hospitalization)
  Sender: FDA-Public Use
  Company Number: PHHO2013US013033

PATIENT
  Age: 58 Year
  Sex: Female
  Weight: 62.59 kg

DRUGS (3)
  1. AFINITOR [Suspect]
     Indication: BREAST CANCER METASTATIC
     Dosage: 5 MG, UNK
     Route: 048
     Dates: start: 20130416
  2. TRASTUZUMAB [Suspect]
     Indication: BREAST CANCER METASTATIC
     Dosage: 122 MG, UNK
     Dates: start: 20130416
  3. VINORELBINE [Suspect]
     Indication: BREAST CANCER METASTATIC
     Dosage: 42 MG, UNK
     Dates: start: 20130416

REACTIONS (2)
  - Haemoptysis [Recovered/Resolved]
  - Anaemia [Recovered/Resolved]
